APPROVED DRUG PRODUCT: THEOPHYLLINE
Active Ingredient: THEOPHYLLINE
Strength: 150MG/15ML
Dosage Form/Route: SYRUP;ORAL
Application: A086545 | Product #001
Applicant: ALPHARMA US PHARMACEUTICALS DIVISION
Approved: Approved Prior to Jan 1, 1982 | RLD: Yes | RS: No | Type: DISCN